FAERS Safety Report 5087287-X (Version None)
Quarter: 2006Q3

REPORT INFORMATION
  Report Type: 
  Country: None (occurrence: None)
  Receive Date: 20060801
  Receipt Date: 20050715
  Transmission Date: 20061208
  Serious: Yes (Hospitalization)
  Sender: FDA-Public Use
  Company Number: OMPQ-PR-0507S-1081

PATIENT
  Age: 77 Year
  Sex: Female

DRUGS (2)
  1. OMNIPAQUE 140 [Suspect]
     Indication: BACK PAIN
     Dosage: SEE IMAGE
     Route: 008
     Dates: start: 20050713, end: 20050713
  2. OMNIPAQUE 140 [Suspect]

REACTIONS (1)
  - ANAPHYLACTOID REACTION [None]
